FAERS Safety Report 10642505 (Version 1)
Quarter: 2014Q4

REPORT INFORMATION
  Report Type: Report from Study
  Country: FR (occurrence: FR)
  Receive Date: 20141210
  Receipt Date: 20141210
  Transmission Date: 20150529
  Serious: Yes (Other)
  Sender: FDA-Public Use
  Company Number: FR-009507513-1412FRA002541

PATIENT
  Age: 64 Year
  Sex: Female
  Weight: 46 kg

DRUGS (3)
  1. DASATINIB [Suspect]
     Active Substance: DASATINIB
     Indication: CHRONIC MYELOID LEUKAEMIA
     Dosage: 100 MG, QD
     Route: 065
     Dates: start: 20131015
  2. PEGINTERFERON ALFA-2B [Suspect]
     Active Substance: PEGINTERFERON ALFA-2B
     Indication: CHRONIC MYELOID LEUKAEMIA
     Dosage: 30 MICROGRAM, QW
     Route: 065
     Dates: start: 20140114
  3. DASATINIB [Suspect]
     Active Substance: DASATINIB
     Dosage: 80 MG, QD
     Route: 065
     Dates: start: 20131212

REACTIONS (1)
  - Neutropenia [Recovered/Resolved]

NARRATIVE: CASE EVENT DATE: 20140317
